FAERS Safety Report 9514968 (Version 1)
Quarter: 2013Q1

REPORT INFORMATION
  Report Type: Spontaneous
  Country: US (occurrence: None)
  Receive Date: 20130305
  Receipt Date: 20130305
  Transmission Date: 20140127
  Serious: Yes (Other)
  Sender: FDA-Public Use
  Company Number: 163-21880-12122946

PATIENT
  Age: 78 Year
  Sex: Female
  Weight: 65.77 kg

DRUGS (7)
  1. REVLIMID (LENALIDOMIDE) [Suspect]
     Indication: NON-HODGKIN^S LYMPHOMA
     Route: 048
     Dates: start: 201207
  2. CALCIUM CITRATE -VITAMIN (CALCIUM CITRATE) [Concomitant]
  3. FISH OIL [Concomitant]
  4. MAGNESIUM (MAGNESIUM) [Concomitant]
  5. METFORMIN HCL (METFORMIN HYDROCHLORIDE) [Concomitant]
  6. SIMVASTATIN (SIMVASTATIN) [Concomitant]
  7. VELCADE (BORTEZOMIB) [Concomitant]

REACTIONS (3)
  - Rib fracture [None]
  - Fall [None]
  - Asthenia [None]
